FAERS Safety Report 24939602 (Version 1)
Quarter: 2025Q1

REPORT INFORMATION
  Report Type: Report from Study
  Country: US (occurrence: US)
  Receive Date: 20250207
  Receipt Date: 20250207
  Transmission Date: 20250409
  Serious: Yes (Hospitalization)
  Sender: ABBVIE
  Company Number: US-ABBVIE-6072171

PATIENT
  Age: 57 Year
  Sex: Female

DRUGS (2)
  1. HUMIRA [Suspect]
     Active Substance: ADALIMUMAB
     Indication: Colitis ulcerative
     Route: 058
     Dates: start: 20181015
  2. HUMIRA [Suspect]
     Active Substance: ADALIMUMAB
     Route: 058

REACTIONS (6)
  - Blood potassium decreased [Unknown]
  - Fungal infection [Unknown]
  - Therapeutic response unexpected [Unknown]
  - Nasopharyngitis [Recovering/Resolving]
  - Choking [Unknown]
  - Cough [Unknown]

NARRATIVE: CASE EVENT DATE: 20241201
